FAERS Safety Report 9567376 (Version 1)
Quarter: 2013Q3

REPORT INFORMATION
  Report Type: Spontaneous
  Country: US (occurrence: US)
  Receive Date: 20130930
  Receipt Date: 20130930
  Transmission Date: 20140515
  Serious: No
  Sender: FDA-Public Use
  Company Number: US-AMGEN-USASP2012062556

PATIENT
  Sex: Female
  Weight: 108.84 kg

DRUGS (10)
  1. ENBREL [Suspect]
     Indication: RHEUMATOID ARTHRITIS
     Dosage: 50 MG, QWK
     Route: 058
  2. MULTIVITAMIN                       /00097801/ [Concomitant]
     Dosage: UNK
  3. IRON [Concomitant]
     Dosage: 18 MG, UNK
  4. FOLIC ACID [Concomitant]
     Dosage: UNK
  5. FUROSEMIDE [Concomitant]
     Dosage: 20 MG, UNK
  6. KLOR-CON M20 [Concomitant]
     Dosage: 20 MEQ ER UNK, UNK
  7. PROMETRIUM                         /00110701/ [Concomitant]
     Dosage: 100 MG, UNK
  8. VITAMIN D                          /00107901/ [Concomitant]
     Dosage: 1000 UNIT, UNK
  9. ATENOL [Concomitant]
     Dosage: 50-25 MG, UNK
  10. METHOTREXATE [Concomitant]
     Dosage: 2.5 MG, UNK

REACTIONS (2)
  - Metrorrhagia [Unknown]
  - Musculoskeletal stiffness [Unknown]
